FAERS Safety Report 16298726 (Version 1)
Quarter: 2019Q2

REPORT INFORMATION
  Report Type: Spontaneous
  Country: US (occurrence: US)
  Receive Date: 20190510
  Receipt Date: 20190510
  Transmission Date: 20190711
  Serious: No
  Sender: FDA-Public Use
  Company Number: US-BAYER-2019-086487

PATIENT
  Sex: Male

DRUGS (3)
  1. LAXATIVE [BISACODYL] [Suspect]
     Active Substance: BISACODYL
     Indication: GASTROINTESTINAL DISORDER
  2. MIRALAX [Suspect]
     Active Substance: POLYETHYLENE GLYCOL 3350
     Indication: GASTROINTESTINAL DISORDER
     Dosage: UNK
     Route: 065
  3. PHILLIPS^ LAXATIVE DIETARY SUPPLEMENT [Suspect]
     Active Substance: MAGNESIUM OXIDE
     Indication: GASTROINTESTINAL DISORDER
     Dosage: 1 AND A HALF
     Route: 048

REACTIONS (5)
  - Therapeutic response unexpected [Unknown]
  - Epigastric discomfort [Recovered/Resolved]
  - Abnormal faeces [Not Recovered/Not Resolved]
  - Incorrect dose administered [Unknown]
  - Gastrointestinal tract irritation [Recovered/Resolved]
